FAERS Safety Report 13710283 (Version 3)
Quarter: 2017Q3

REPORT INFORMATION
  Report Type: Spontaneous
  Country: US (occurrence: US)
  Receive Date: 20170703
  Receipt Date: 20170831
  Transmission Date: 20171127
  Serious: No
  Sender: FDA-Public Use
  Company Number: US-ACTELION-A-US2017-156046

PATIENT
  Age: 52 Year
  Sex: Male

DRUGS (6)
  1. UPTRAVI [Suspect]
     Active Substance: SELEXIPAG
     Indication: PRODUCT USED FOR UNKNOWN INDICATION
     Dosage: 600 MCG, UNK
     Route: 048
     Dates: start: 20170617
  2. UPTRAVI [Suspect]
     Active Substance: SELEXIPAG
     Dosage: 1000 MCG, UNK
     Route: 048
  3. REVATIO [Concomitant]
     Active Substance: SILDENAFIL CITRATE
  4. AMBRISENTAN [Suspect]
     Active Substance: AMBRISENTAN
     Indication: PRODUCT USED FOR UNKNOWN INDICATION
     Dosage: 5 MG, QD
     Route: 065
  5. AMLODIPINE [Concomitant]
     Active Substance: AMLODIPINE BESYLATE
  6. WARFARIN [Concomitant]
     Active Substance: WARFARIN

REACTIONS (7)
  - Diarrhoea [Unknown]
  - Abdominal discomfort [Not Recovered/Not Resolved]
  - Headache [Recovered/Resolved]
  - Flushing [Not Recovered/Not Resolved]
  - Constipation [Not Recovered/Not Resolved]
  - Abdominal distension [Not Recovered/Not Resolved]
  - Pain [Not Recovered/Not Resolved]
